FAERS Safety Report 21221110 (Version 1)
Quarter: 2022Q3

REPORT INFORMATION
  Report Type: Report from Study
  Country: US (occurrence: US)
  Receive Date: 20220817
  Receipt Date: 20220817
  Transmission Date: 20221027
  Serious: Yes (Other)
  Sender: FDA-Public Use
  Company Number: US-TAKEDA-2022TUS055369

PATIENT
  Age: 50 Year
  Sex: Male

DRUGS (3)
  1. HUMAN IMMUNOGLOBULIN G [Suspect]
     Active Substance: HUMAN IMMUNOGLOBULIN G
     Indication: Primary immunodeficiency syndrome
     Dosage: 50 GRAM, MONTHLY
     Route: 042
  2. HUMAN IMMUNOGLOBULIN G [Suspect]
     Active Substance: HUMAN IMMUNOGLOBULIN G
     Indication: Primary immunodeficiency syndrome
     Dosage: 50 GRAM, MONTHLY
     Route: 042
  3. THIAMINE HYDROCHLORIDE [Concomitant]
     Active Substance: THIAMINE HYDROCHLORIDE

REACTIONS (15)
  - Adrenal gland cancer [Unknown]
  - Cataract [Unknown]
  - Nephrolithiasis [Unknown]
  - Chills [Unknown]
  - Bacterial infection [Unknown]
  - Product dispensing error [Recovered/Resolved]
  - Inappropriate schedule of product administration [Unknown]
  - COVID-19 [Unknown]
  - Neurofibroma [Unknown]
  - Weight increased [Recovering/Resolving]
  - Teeth brittle [Unknown]
  - Rib fracture [Unknown]
  - Lower limb fracture [Unknown]
  - Tooth fracture [Unknown]
  - Bone disorder [Unknown]
